FAERS Safety Report 9426254 (Version 1)
Quarter: 2013Q3

REPORT INFORMATION
  Report Type: Spontaneous
  Country: US (occurrence: US)
  Receive Date: 20130730
  Receipt Date: 20130730
  Transmission Date: 20140515
  Serious: No
  Sender: FDA-Public Use
  Company Number: US-009507513-1307USA012955

PATIENT
  Sex: Female

DRUGS (1)
  1. NASONEX [Suspect]
     Dosage: TWO SPRAYS IN EACH NOSTRIL DAILY FOR THIRTY DAYS
     Route: 055
     Dates: end: 20130720

REACTIONS (5)
  - Insomnia [Unknown]
  - Depression [Unknown]
  - Anxiety [Unknown]
  - Crying [Unknown]
  - Restless legs syndrome [Unknown]
